FAERS Safety Report 15715066 (Version 2)
Quarter: 2018Q4

REPORT INFORMATION
  Report Type: Report from Study
  Country: KR (occurrence: KR)
  Receive Date: 20181212
  Receipt Date: 20181225
  Transmission Date: 20190205
  Serious: Yes (Other)
  Sender: FDA-Public Use
  Company Number: PHHY2018KR102233

PATIENT
  Age: 71 Year
  Sex: Female

DRUGS (32)
  1. SCD MAGNESIUM OXIDE [Concomitant]
     Indication: CARDIOMYOPATHY
     Dosage: 250 MG, UNK
     Route: 065
     Dates: start: 20180414, end: 20180414
  2. GLUCOSE [Concomitant]
     Active Substance: DEXTROSE
     Indication: CARDIOMYOPATHY
     Dosage: 200 ML, UNK
     Route: 065
     Dates: start: 20180412, end: 20180427
  3. ISOTONIC SODIUM CHLORIDE SOLUTION [Concomitant]
     Active Substance: SODIUM CHLORIDE
     Indication: CARDIOMYOPATHY
     Dosage: 100 ML, UNK
     Route: 065
     Dates: start: 20180413, end: 20180413
  4. CATHEJELL [Concomitant]
     Indication: CARDIAC FAILURE CHRONIC
     Dosage: UNK
     Route: 065
     Dates: start: 20180419, end: 20180419
  5. DUPHALAC [Concomitant]
     Active Substance: LACTULOSE
     Indication: CARDIAC FAILURE CHRONIC
     Dosage: UNK
     Route: 065
     Dates: start: 20180419, end: 20180419
  6. CORDARONE [Concomitant]
     Active Substance: AMIODARONE HYDROCHLORIDE
     Indication: ATRIAL FIBRILLATION
     Dosage: 200 MG, UNK
     Route: 065
     Dates: start: 20180404, end: 20180522
  7. PANTOLINE [Concomitant]
     Active Substance: PANTOPRAZOLE SODIUM
     Indication: DYSPHAGIA
     Dosage: 20 MG, UNK
     Route: 065
     Dates: start: 20171212
  8. LASIX [Concomitant]
     Active Substance: FUROSEMIDE
     Dosage: UNK
     Route: 065
     Dates: start: 20180829, end: 20180829
  9. DULCOLAX SP [Concomitant]
     Indication: CARDIAC FAILURE CHRONIC
     Dosage: UNK
     Route: 065
     Dates: start: 20180419, end: 20180419
  10. HUONS LIDOCAINE HCL EPINEPHRINE [Concomitant]
     Indication: CARDIAC FAILURE CHRONIC
     Dosage: UNK
     Route: 065
     Dates: start: 20180420, end: 20180420
  11. ATIVAN [Concomitant]
     Active Substance: LORAZEPAM
     Indication: CARDIAC FAILURE CHRONIC
     Dosage: UNK
     Route: 065
     Dates: start: 20180418, end: 20180418
  12. WARFARIN [Concomitant]
     Active Substance: WARFARIN
     Indication: CARDIAC FAILURE CHRONIC
     Dosage: UNK
     Route: 065
     Dates: start: 20180419, end: 20180518
  13. DIOVAN [Concomitant]
     Active Substance: VALSARTAN
     Indication: CARDIAC FAILURE CHRONIC
     Dosage: UNK
     Route: 065
     Dates: start: 20180410, end: 20180411
  14. ALDACTONE [Concomitant]
     Active Substance: SPIRONOLACTONE
     Indication: CARDIAC FAILURE CONGESTIVE
     Dosage: 25 MG, UNK
     Route: 065
     Dates: start: 20060627
  15. K-CONTIN CONTINUS [Concomitant]
     Indication: CARDIOMYOPATHY
     Dosage: 600 MG, UNK
     Route: 065
     Dates: start: 20180416, end: 20180416
  16. AZEPTIN [Concomitant]
     Active Substance: AZELASTINE HYDROCHLORIDE
     Indication: CARDIOMYOPATHY
     Dosage: UNK
     Route: 065
     Dates: start: 20180416, end: 20180416
  17. COUGH SYRUP [Concomitant]
     Active Substance: DEXTROMETHORPHAN HYDROBROMIDE\GUAIFENESIN
     Indication: CARDIAC FAILURE CHRONIC
     Dosage: UNK
     Route: 065
     Dates: start: 20180424, end: 20180424
  18. DIGOSIN [Concomitant]
     Active Substance: DIGOXIN
     Indication: CARDIAC FAILURE CHRONIC
     Dosage: UNK
     Route: 065
     Dates: start: 20180423, end: 20180514
  19. TRIDOL [Concomitant]
     Active Substance: TRAMADOL HYDROCHLORIDE
     Indication: CARDIAC FAILURE CHRONIC
     Dosage: UNK
     Route: 065
     Dates: start: 20180418, end: 20180418
  20. GANAKHAN [Concomitant]
     Indication: DYSPHAGIA
     Dosage: 50 MG, UNK
     Route: 065
     Dates: start: 20170605, end: 20180416
  21. NACL [Concomitant]
     Active Substance: SODIUM CHLORIDE
     Indication: PREMEDICATION
     Dosage: 500 ML, UNK
     Route: 065
     Dates: start: 20180515, end: 20180515
  22. CLEXANE [Concomitant]
     Active Substance: ENOXAPARIN SODIUM
     Indication: CEREBRAL INFARCTION
     Dosage: 60MG/0.6ML
     Route: 065
     Dates: start: 20180411, end: 20180425
  23. LASIX [Concomitant]
     Active Substance: FUROSEMIDE
     Indication: LEFT VENTRICULAR FAILURE
     Dosage: UNK
     Route: 065
     Dates: start: 20180411, end: 20180413
  24. TOBUREX [Concomitant]
     Indication: CARDIOMYOPATHY
     Dosage: UNK
     Route: 065
     Dates: start: 20180411, end: 20180427
  25. KEPPRA [Concomitant]
     Active Substance: LEVETIRACETAM
     Indication: CARDIAC FAILURE CHRONIC
     Dosage: UNK
     Route: 065
     Dates: start: 20180418
  26. ENTRESTO [Suspect]
     Active Substance: SACUBITRIL\VALSARTAN
     Indication: CARDIAC FAILURE CHRONIC
     Dosage: 50 MG, BID
     Route: 048
     Dates: start: 20180411, end: 20180825
  27. ENTRESTO [Suspect]
     Active Substance: SACUBITRIL\VALSARTAN
     Dosage: 50 MG, QD
     Route: 048
     Dates: start: 20180911
  28. PLAVIX [Concomitant]
     Active Substance: CLOPIDOGREL BISULFATE
     Indication: CEREBROVASCULAR ACCIDENT
     Dosage: 75 MG, UNK
     Route: 065
     Dates: start: 20180411
  29. LASIX [Concomitant]
     Active Substance: FUROSEMIDE
     Indication: CARDIAC FAILURE CONGESTIVE
     Dosage: 20 MG, UNK
     Route: 065
     Dates: start: 20060627
  30. ISOTONIC SODIUM CHLORIDE SOLUTION [Concomitant]
     Active Substance: SODIUM CHLORIDE
     Indication: CARDIAC FAILURE CHRONIC
     Dosage: UNK
     Route: 065
     Dates: start: 20180418, end: 20180418
  31. SCD MAGNESIUM OXIDE [Concomitant]
     Indication: CARDIAC FAILURE CHRONIC
     Dosage: 250 MG, UNK
     Route: 065
     Dates: start: 20180427, end: 20180427
  32. K-CONTIN CONTINUS [Concomitant]
     Indication: CARDIAC FAILURE CHRONIC

REACTIONS (8)
  - Inappropriate schedule of product administration [Unknown]
  - Loss of consciousness [Recovering/Resolving]
  - Concomitant disease aggravated [Recovering/Resolving]
  - Angina unstable [Not Recovered/Not Resolved]
  - Hypokalaemia [Recovered/Resolved]
  - Generalised tonic-clonic seizure [Recovered/Resolved]
  - Blood thyroid stimulating hormone increased [Not Recovered/Not Resolved]
  - Vomiting [Recovered/Resolved]

NARRATIVE: CASE EVENT DATE: 20180418
